FAERS Safety Report 17746218 (Version 3)
Quarter: 2020Q2

REPORT INFORMATION
  Report Type: Spontaneous
  Country: US (occurrence: US)
  Receive Date: 20200505
  Receipt Date: 20200626
  Transmission Date: 20200714
  Serious: Yes (Hospitalization, Other)
  Sender: FDA-Public Use
  Company Number: US-UNITED THERAPEUTICS-UNT-2020-005676

PATIENT
  Age: 64 Year
  Sex: Female
  Weight: 68.03 kg

DRUGS (4)
  1. REMODULIN [Suspect]
     Active Substance: TREPROSTINIL
     Dosage: 0.056 ?G/KG, CONTINUING
     Route: 058
  2. REMODULIN [Suspect]
     Active Substance: TREPROSTINIL
     Dosage: 0.065 ?G/KG, CONTINUING
     Route: 058
  3. TADALAFIL. [Concomitant]
     Active Substance: TADALAFIL
     Indication: PRODUCT USED FOR UNKNOWN INDICATION
     Dosage: UNK
     Route: 065
  4. REMODULIN [Suspect]
     Active Substance: TREPROSTINIL
     Indication: PULMONARY ARTERIAL HYPERTENSION
     Dosage: UNK, CONTINUING
     Route: 058
     Dates: start: 20180305

REACTIONS (15)
  - Headache [Not Recovered/Not Resolved]
  - Infusion site pain [Unknown]
  - Diarrhoea [Not Recovered/Not Resolved]
  - Feeling abnormal [Unknown]
  - Infusion site swelling [Unknown]
  - Infusion site discharge [Unknown]
  - Spinal fracture [Unknown]
  - Pyrexia [Not Recovered/Not Resolved]
  - Purulent discharge [Unknown]
  - Nausea [Not Recovered/Not Resolved]
  - Pain [Not Recovered/Not Resolved]
  - Fall [Recovered/Resolved with Sequelae]
  - Infusion site haemorrhage [Unknown]
  - Device dislocation [Unknown]
  - Infusion site erythema [Unknown]

NARRATIVE: CASE EVENT DATE: 20200410
